FAERS Safety Report 4637267-0 (Version None)
Quarter: 2005Q2

REPORT INFORMATION
  Report Type: 
  Country: None (occurrence: None)
  Receive Date: 20050418
  Receipt Date: 20050406
  Transmission Date: 20051028
  Serious: Yes (Hospitalization)
  Sender: FDA-Public Use
  Company Number: US-JNJFOC-20050401926

PATIENT
  Sex: Female
  Weight: 61.24 kg

DRUGS (4)
  1. REMICADE [Suspect]
     Indication: RHEUMATOID ARTHRITIS
     Route: 042
  2. METHOTREXATE [Concomitant]
     Indication: RHEUMATOID ARTHRITIS
  3. PREDNISONE [Concomitant]
     Indication: RHEUMATOID ARTHRITIS
  4. BENADRYL [Concomitant]
     Indication: RHEUMATOID ARTHRITIS

REACTIONS (4)
  - DYSPNOEA [None]
  - ERYTHEMA [None]
  - HOT FLUSH [None]
  - URTICARIA [None]
